FAERS Safety Report 8880679 (Version 2)
Quarter: 2012Q4

REPORT INFORMATION
  Report Type: 
  Country: CN (occurrence: CN)
  Receive Date: 20121101
  Receipt Date: 20121109
  Transmission Date: 20130627
  Serious: Yes (Hospitalization)
  Sender: FDA-Public Use
  Company Number: CN-BAXTER-2012BAX020971

PATIENT
  Age: 54 Year
  Sex: Female
  Weight: 59 kg

DRUGS (3)
  1. LOW CALCIUM PERITONEAL DIALYSIS SOLUTION ( LACTATE- G1.5%) [Suspect]
     Indication: UREMIA
     Dosage: 4L PER DAY
     Route: 033
     Dates: end: 20121001
  2. LOW CALCIUM PERITONEAL DIALYSIS SOLUTION ( LACTATE- G2.5%) [Suspect]
     Indication: UREMIA
     Dosage: 4L PER DAY
     Route: 033
  3. LOW CALCIUM PERITONEAL DIALYSIS SOLUTION ( LACTATE- G2.5%) [Suspect]
     Dosage: 4 L ler day
     Route: 033

REACTIONS (4)
  - Malaise [Unknown]
  - Peritonitis bacterial [Recovered/Resolved]
  - Visual acuity reduced [Unknown]
  - Device breakage [Recovered/Resolved]
